APPROVED DRUG PRODUCT: AMITRIPTYLINE HYDROCHLORIDE
Active Ingredient: AMITRIPTYLINE HYDROCHLORIDE
Strength: 75MG
Dosage Form/Route: TABLET;ORAL
Application: A040816 | Product #004
Applicant: SUN PHARMACEUTICAL INDUSTRIES INC
Approved: Jun 27, 2008 | RLD: No | RS: No | Type: DISCN